FAERS Safety Report 9309092 (Version 1)
Quarter: 2013Q2

REPORT INFORMATION
  Report Type: Spontaneous
  Country: US (occurrence: US)
  Receive Date: 20130525
  Receipt Date: 20130525
  Transmission Date: 20140414
  Serious: Yes (Hospitalization, Other)
  Sender: FDA-Public Use
  Company Number: US-BRISTOL-MYERS SQUIBB COMPANY-18714576

PATIENT
  Age: 54 Year
  Sex: Male
  Weight: 144.67 kg

DRUGS (15)
  1. BYDUREON [Suspect]
     Indication: TYPE 2 DIABETES MELLITUS
     Route: 058
     Dates: start: 20130218
  2. BYETTA [Suspect]
     Indication: TYPE 2 DIABETES MELLITUS
     Dosage: UNK-17FEB13 (10 MCG)
     Route: 058
     Dates: start: 201203
  3. METFORMIN [Concomitant]
     Indication: TYPE 2 DIABETES MELLITUS
     Route: 048
  4. GLYBURIDE [Concomitant]
     Indication: TYPE 2 DIABETES MELLITUS
     Route: 048
  5. URSODIOL [Concomitant]
  6. NEXIUM [Concomitant]
     Indication: GASTROOESOPHAGEAL REFLUX DISEASE
     Route: 048
  7. ATENOLOL [Concomitant]
     Indication: HYPERTENSION
  8. ENALAPRIL [Concomitant]
     Indication: HYPERTENSION
     Route: 048
  9. HYDROCHLOROTHIAZIDE [Concomitant]
     Indication: HYPERTENSION
     Route: 048
  10. VESICARE [Concomitant]
     Indication: BLADDER DISORDER
  11. KLONOPIN [Concomitant]
     Indication: ANXIETY
     Route: 048
  12. CELEBREX [Concomitant]
     Indication: INTESTINAL POLYP
     Route: 048
  13. LOMOTIL [Concomitant]
     Indication: DIARRHOEA
     Route: 048
  14. DICYCLOMINE [Concomitant]
     Indication: IRRITABLE BOWEL SYNDROME
     Route: 048
  15. EXENATIDE 10MCG PEN, DISPOSABLE DEVICE [Concomitant]

REACTIONS (3)
  - Cellulitis [Recovered/Resolved]
  - Blood glucose increased [Recovering/Resolving]
  - Injection site haemorrhage [Recovered/Resolved]
